FAERS Safety Report 12154817 (Version 1)
Quarter: 2016Q1

REPORT INFORMATION
  Report Type: Spontaneous
  Country: IT (occurrence: IT)
  Receive Date: 20160307
  Receipt Date: 20160307
  Transmission Date: 20160526
  Serious: Yes (Hospitalization, Other)
  Sender: FDA-Public Use
  Company Number: IT-ACTAVIS-2016-04719

PATIENT
  Age: 93 Year
  Sex: Female

DRUGS (5)
  1. SYCREST [Suspect]
     Active Substance: ASENAPINE MALEATE
     Indication: PRODUCT USED FOR UNKNOWN INDICATION
     Dosage: UNK
     Route: 048
     Dates: start: 20150720, end: 20150724
  2. TRITTICO [Suspect]
     Active Substance: TRAZODONE HYDROCHLORIDE
     Indication: PRODUCT USED FOR UNKNOWN INDICATION
     Dosage: 30 GTT DROP(S), DAILY
     Route: 048
     Dates: start: 20150101, end: 20150724
  3. TALOFEN [Suspect]
     Active Substance: PROMAZINE HYDROCHLORIDE
     Indication: PRODUCT USED FOR UNKNOWN INDICATION
     Dosage: 10 GTT DROP(S), DAILY
     Route: 048
     Dates: start: 20150101, end: 20150724
  4. GABAPENTIN (UNKNOWN) [Suspect]
     Active Substance: GABAPENTIN
     Indication: PRODUCT USED FOR UNKNOWN INDICATION
     Dosage: 1200 MG, DAILY
     Route: 048
     Dates: start: 20150101, end: 20150724
  5. GABAPENTIN (UNKNOWN) [Suspect]
     Active Substance: GABAPENTIN
     Dosage: 1200 MG, DAILY
     Route: 048

REACTIONS (4)
  - Hypotension [Unknown]
  - Psychomotor hyperactivity [Recovered/Resolved]
  - Aggression [Recovered/Resolved]
  - Catatonia [Recovered/Resolved]

NARRATIVE: CASE EVENT DATE: 20150720
